FAERS Safety Report 7236143-7 (Version None)
Quarter: 2011Q1

REPORT INFORMATION
  Report Type: 
  Country: None (occurrence: None)
  Receive Date: 20110120
  Receipt Date: 20110114
  Transmission Date: 20110831
  Serious: No
  Sender: FDA-Public Use
  Company Number: PR-TEVA-263556USA

PATIENT
  Sex: Male

DRUGS (5)
  1. SULINDAC [Concomitant]
  2. AMANTADINE HCL [Concomitant]
  3. TERAZOSIN [Concomitant]
  4. AZILECT [Suspect]
     Indication: PARKINSON'S DISEASE
     Route: 048
     Dates: start: 20080101
  5. SINEMET [Concomitant]

REACTIONS (2)
  - VISUAL IMPAIRMENT [None]
  - VISION BLURRED [None]
